FAERS Safety Report 13242615 (Version 1)
Quarter: 2017Q1

REPORT INFORMATION
  Report Type: Spontaneous
  Country: US (occurrence: US)
  Receive Date: 20170216
  Receipt Date: 20170216
  Transmission Date: 20170428
  Serious: Yes (Death)
  Sender: FDA-Public Use
  Company Number: None

PATIENT
  Age: 62 Year
  Sex: Male

DRUGS (2)
  1. MYCOPHENOLIC ACID DR 360 MG MYLAN [Suspect]
     Active Substance: MYCOPHENOLIC ACID
     Indication: MALAISE
     Route: 048
     Dates: start: 20170127, end: 20170210
  2. TACROLIMUS 1 MG ACCORD [Suspect]
     Active Substance: TACROLIMUS
     Indication: MALAISE
     Route: 048
     Dates: start: 20170127, end: 20170210

REACTIONS (1)
  - Death [None]

NARRATIVE: CASE EVENT DATE: 20170210
